FAERS Safety Report 4757164-X (Version None)
Quarter: 2005Q3

REPORT INFORMATION
  Report Type: 
  Country: None (occurrence: None)
  Receive Date: 20050829
  Receipt Date: 20050817
  Transmission Date: 20060218
  Serious: Yes (Hospitalization)
  Sender: FDA-Public Use
  Company Number: 2005117854

PATIENT
  Age: 83 Year
  Sex: Male

DRUGS (2)
  1. ZOLOFT [Suspect]
     Indication: DEPRESSION
     Dosage: 50 MG (50 MG, 1 IN 1 D),
     Dates: start: 20050301
  2. FLUINDIONE (FLUINDIONE) [Concomitant]

REACTIONS (8)
  - COAGULOPATHY [None]
  - DISORIENTATION [None]
  - HYPONATRAEMIA [None]
  - INTERNATIONAL NORMALISED RATIO DECREASED [None]
  - PROTHROMBIN LEVEL INCREASED [None]
  - PULMONARY OEDEMA [None]
  - RASH [None]
  - WEIGHT DECREASED [None]
